FAERS Safety Report 12363281 (Version 2)
Quarter: 2020Q1

REPORT INFORMATION
  Report Type: Spontaneous
  Country: US (occurrence: US)
  Receive Date: 20160512
  Receipt Date: 20200110
  Transmission Date: 20200409
  Serious: No
  Sender: FDA-Public Use
  Company Number: US-UCBSA-2015007539

PATIENT
  Sex: Female

DRUGS (2)
  1. CIMZIA [Suspect]
     Active Substance: CERTOLIZUMAB PEGOL
     Dosage: INJECT 2 SYRINGES  EVERY 4 WEEKS
     Route: 058
     Dates: start: 2014, end: 20140130
  2. CIMZIA [Suspect]
     Active Substance: CERTOLIZUMAB PEGOL
     Indication: RHEUMATOID ARTHRITIS
     Dosage: (STRENGTH 200 MG/ML), INJECT 2 SYRINGES (200 MG EACH) AT EVERY 2 WEEKS
     Route: 058
     Dates: start: 20130403, end: 2014

REACTIONS (1)
  - Urticaria [Unknown]
